FAERS Safety Report 6395826-1 (Version None)
Quarter: 2009Q4

REPORT INFORMATION
  Report Type: 
  Country: None (occurrence: None)
  Receive Date: 20091009
  Receipt Date: 20090707
  Transmission Date: 20100525
  Serious: Yes (Other)
  Sender: FDA-Public Use
  Company Number: A0793915A

PATIENT

DRUGS (3)
  1. LAPATINIB [Suspect]
     Indication: BREAST CANCER
  2. HERCEPTIN [Concomitant]
     Indication: BREAST CANCER
  3. CARBOPLATIN + PACLITAXEL [Concomitant]

REACTIONS (1)
  - LIVER FUNCTION TEST ABNORMAL [None]
